FAERS Safety Report 24654100 (Version 1)
Quarter: 2024Q4

REPORT INFORMATION
  Report Type: Spontaneous
  Country: PL (occurrence: PL)
  Receive Date: 20241122
  Receipt Date: 20241122
  Transmission Date: 20250115
  Serious: Yes (Other)
  Sender: INCYTE
  Company Number: PL-002147023-NVSC2024PL222509

PATIENT

DRUGS (14)
  1. RUXOLITINIB [Suspect]
     Active Substance: RUXOLITINIB
     Indication: Myeloproliferative neoplasm
     Dosage: UNK (2 X 15MG)
     Route: 065
     Dates: start: 20240320
  2. RUXOLITINIB [Suspect]
     Active Substance: RUXOLITINIB
     Dosage: UNK (2 X 5 MG DOSE IN VIEW OF THROMBOCYTOPENIA
     Route: 065
     Dates: start: 20240410
  3. RUXOLITINIB [Suspect]
     Active Substance: RUXOLITINIB
     Dosage: UNK (10 MG IN THE MORNING AND 5 MG IN THE EVENING)
     Route: 065
     Dates: start: 20240417
  4. RUXOLITINIB [Suspect]
     Active Substance: RUXOLITINIB
     Dosage: UNK (2 X 15MG)
     Route: 065
     Dates: start: 20240506
  5. RUXOLITINIB [Suspect]
     Active Substance: RUXOLITINIB
     Dosage: UNK (CONTINUATION OF JAKAVI 2 X 15 MG)
     Route: 065
     Dates: start: 20240520
  6. RUXOLITINIB [Suspect]
     Active Substance: RUXOLITINIB
     Dosage: UNK (2 X 15 MG IS CONTINUED)
     Route: 065
     Dates: start: 20240529
  7. RUXOLITINIB [Suspect]
     Active Substance: RUXOLITINIB
     Dosage: UNK (2 X 20 MG)
     Route: 065
     Dates: start: 20240703
  8. RUXOLITINIB [Suspect]
     Active Substance: RUXOLITINIB
     Dosage: UNK (2 X 20 MG DOSE)
     Route: 065
     Dates: start: 20240809
  9. RUXOLITINIB [Suspect]
     Active Substance: RUXOLITINIB
     Dosage: UNK (2 X 20 MG DOSE)
     Route: 065
     Dates: start: 20240918
  10. CARVEDILOL [Concomitant]
     Active Substance: CARVEDILOL
     Indication: Product used for unknown indication
     Dosage: UNK
     Route: 065
  11. LOSARTAN POTASSIUM [Concomitant]
     Active Substance: LOSARTAN POTASSIUM
     Indication: Product used for unknown indication
     Dosage: UNK
     Route: 065
  12. AMLODIPINE BESYLATE [Concomitant]
     Active Substance: AMLODIPINE BESYLATE
     Indication: Product used for unknown indication
     Dosage: UNK
     Route: 065
  13. INDAPAMIDE [Concomitant]
     Active Substance: INDAPAMIDE
     Indication: Product used for unknown indication
     Dosage: UNK
     Route: 065
  14. SIMVASTATIN [Concomitant]
     Active Substance: SIMVASTATIN
     Indication: Product used for unknown indication
     Dosage: UNK
     Route: 065

REACTIONS (8)
  - Abdominal discomfort [Unknown]
  - Body mass index decreased [Unknown]
  - Pruritus [Unknown]
  - Laboratory test abnormal [Unknown]
  - Hyperhidrosis [Unknown]
  - Bone pain [Unknown]
  - Pyrexia [Unknown]
  - Thrombocytopenia [Unknown]
